FAERS Safety Report 4300383-7 (Version None)
Quarter: 2004Q1

REPORT INFORMATION
  Report Type: 
  Country: None (occurrence: None)
  Receive Date: 20040220
  Receipt Date: 20040209
  Transmission Date: 20041129
  Serious: Yes (Other)
  Sender: FDA-Public Use
  Company Number: IE-GLAXOSMITHKLINE-B0322640A

PATIENT
  Age: 50 Year
  Sex: Male

DRUGS (2)
  1. ZYBAN [Suspect]
     Indication: SMOKER
     Dosage: 300MG PER DAY
  2. NO CONCURRENT MEDICATION [Concomitant]

REACTIONS (3)
  - CHEST PAIN [None]
  - GRANULOCYTOPENIA [None]
  - SYNCOPE [None]
